FAERS Safety Report 16652182 (Version 1)
Quarter: 2019Q3

REPORT INFORMATION
  Report Type: Spontaneous
  Country: US (occurrence: US)
  Receive Date: 20190730
  Receipt Date: 20190730
  Transmission Date: 20191004
  Serious: Yes (Disabling)
  Sender: FDA-Public Use
  Company Number: None

PATIENT
  Age: 63 Year
  Sex: Female
  Weight: 81 kg

DRUGS (11)
  1. CLOPIDOGREL [Concomitant]
     Active Substance: CLOPIDOGREL BISULFATE
  2. METOPROLOL SUCCINATE. [Concomitant]
     Active Substance: METOPROLOL SUCCINATE
  3. COQ10 [Concomitant]
     Active Substance: UBIDECARENONE
  4. MULTIVITAMIN [Concomitant]
     Active Substance: VITAMINS
  5. ASA [Concomitant]
     Active Substance: ASPIRIN
  6. CITALOPRAM [Concomitant]
     Active Substance: CITALOPRAM HYDROBROMIDE
  7. LISINOPRIL. [Concomitant]
     Active Substance: LISINOPRIL
  8. ROSUVASTATIN. [Concomitant]
     Active Substance: ROSUVASTATIN
  9. PROLIA [Suspect]
     Active Substance: DENOSUMAB
     Indication: OSTEOPENIA
     Route: 030
     Dates: start: 20190228, end: 20190228
  10. EZETIMIBE. [Concomitant]
     Active Substance: EZETIMIBE
  11. LORATADINE. [Concomitant]
     Active Substance: LORATADINE

REACTIONS (7)
  - Weight bearing difficulty [None]
  - Muscle discomfort [None]
  - Bone pain [None]
  - Myalgia [None]
  - Intermittent claudication [None]
  - Pain [None]
  - Poor quality sleep [None]

NARRATIVE: CASE EVENT DATE: 20190420
